FAERS Safety Report 18818156 (Version 4)
Quarter: 2021Q3

REPORT INFORMATION
  Report Type: Report from Study
  Country: US (occurrence: US)
  Receive Date: 20210201
  Receipt Date: 20210928
  Transmission Date: 20211014
  Serious: Yes (Other)
  Sender: FDA-Public Use
  Company Number: NVSC2021US019710

PATIENT
  Age: 25 Year
  Sex: Female

DRUGS (3)
  1. GILENYA [Suspect]
     Active Substance: FINGOLIMOD HYDROCHLORIDE
     Dosage: 0.5 MG/KG, QD
     Route: 048
  2. GILENYA [Suspect]
     Active Substance: FINGOLIMOD HYDROCHLORIDE
     Indication: MULTIPLE SCLEROSIS
     Dosage: 0.5 MG
     Route: 048
     Dates: start: 20210125
  3. GILENYA [Suspect]
     Active Substance: FINGOLIMOD HYDROCHLORIDE
     Route: 048

REACTIONS (4)
  - Bradycardia [Recovered/Resolved]
  - Heart rate increased [Recovered/Resolved]
  - Drug ineffective [Not Recovered/Not Resolved]
  - Dizziness postural [Recovered/Resolved]

NARRATIVE: CASE EVENT DATE: 20210125
